FAERS Safety Report 9536547 (Version 1)
Quarter: 2013Q3

REPORT INFORMATION
  Report Type: Spontaneous
  Country: US (occurrence: US)
  Receive Date: 20130919
  Receipt Date: 20130919
  Transmission Date: 20140515
  Serious: No
  Sender: FDA-Public Use
  Company Number: US-JNJFOC-20130909226

PATIENT
  Sex: Male
  Weight: 81.65 kg

DRUGS (6)
  1. DURAGESIC [Suspect]
     Indication: COMPRESSION FRACTURE
     Dosage: 100 UG +75 UG
     Route: 062
     Dates: start: 2013
  2. DURAGESIC [Suspect]
     Indication: COMPRESSION FRACTURE
     Route: 062
     Dates: end: 2013
  3. DURAGESIC [Suspect]
     Indication: NEURALGIA
     Dosage: 100 UG +75 UG
     Route: 062
     Dates: start: 2013
  4. DURAGESIC [Suspect]
     Indication: NEURALGIA
     Route: 062
     Dates: end: 2013
  5. DURAGESIC [Suspect]
     Indication: BACK PAIN
     Route: 062
     Dates: end: 2013
  6. DURAGESIC [Suspect]
     Indication: BACK PAIN
     Dosage: 100 UG +75 UG
     Route: 062
     Dates: start: 2013

REACTIONS (6)
  - Wrong technique in drug usage process [Not Recovered/Not Resolved]
  - Drug effect incomplete [Not Recovered/Not Resolved]
  - Drug ineffective [Not Recovered/Not Resolved]
  - Back pain [Not Recovered/Not Resolved]
  - Product quality issue [Not Recovered/Not Resolved]
  - Wrong technique in drug usage process [Not Recovered/Not Resolved]
